FAERS Safety Report 9523865 (Version 1)
Quarter: 2013Q3

REPORT INFORMATION
  Report Type: Spontaneous
  Country: RU (occurrence: RU)
  Receive Date: 20130916
  Receipt Date: 20130916
  Transmission Date: 20140515
  Serious: Yes (Death)
  Sender: FDA-Public Use
  Company Number: RU-MERCK-1309RUS005570

PATIENT
  Sex: 0

DRUGS (1)
  1. CANCIDAS [Suspect]
     Indication: PNEUMONIA FUNGAL

REACTIONS (2)
  - Alanine aminotransferase increased [Fatal]
  - Aspartate aminotransferase increased [Fatal]
